FAERS Safety Report 4691157-6 (Version None)
Quarter: 2005Q2

REPORT INFORMATION
  Report Type: 
  Country: None (occurrence: None)
  Receive Date: 20050610
  Receipt Date: 20050531
  Transmission Date: 20051028
  Serious: Yes (Other)
  Sender: FDA-Public Use
  Company Number: 2005081518

PATIENT
  Sex: Female

DRUGS (2)
  1. BEXTRA [Suspect]
     Indication: LIMB INJURY
     Dosage: ORAL
     Route: 048
  2. CELEBREX [Suspect]
     Dosage: ORAL
     Route: 048

REACTIONS (4)
  - BUNION [None]
  - DRUG INEFFECTIVE [None]
  - LIMB INJURY [None]
  - PAIN [None]
